FAERS Safety Report 7409951-7 (Version None)
Quarter: 2011Q2

REPORT INFORMATION
  Report Type: 
  Country: None (occurrence: None)
  Receive Date: 20110412
  Receipt Date: 20110407
  Transmission Date: 20111010
  Serious: Yes (Congenital Anomaly, Other)
  Sender: FDA-Public Use
  Company Number: US-PFIZER INC-2011077244

PATIENT

DRUGS (8)
  1. DEPO-PROVERA [Concomitant]
     Dosage: 150 MG/ML, EVERY THREE MONTHS
     Route: 064
     Dates: start: 20100524
  2. CLOMID [Concomitant]
     Dosage: 50 MG, 2X/DAY
     Route: 064
     Dates: start: 20100524
  3. PROGESTERONE [Concomitant]
     Dosage: 8 %, 1X/DAY
     Route: 064
     Dates: start: 20100617
  4. PRENATAL VITAMINS [Concomitant]
     Dosage: UNK
     Route: 064
     Dates: start: 20100706
  5. DOCOSAHEXANOIC ACID [Concomitant]
     Dosage: UNK
     Route: 064
     Dates: start: 20100706
  6. ZOLOFT [Suspect]
     Dosage: 100 MG, EVERYDAY
     Dates: start: 20080708
  7. ZOFRAN [Concomitant]
     Dosage: 8 MG, 3X/DAY
     Route: 064
     Dates: start: 20101103
  8. ESTRADIOL [Concomitant]
     Dosage: 3 MG, 2X/DAY
     Route: 064
     Dates: start: 20100527

REACTIONS (2)
  - TALIPES [None]
  - DRUG EXPOSURE DURING PREGNANCY [None]
